FAERS Safety Report 9032982 (Version 4)
Quarter: 2013Q1

REPORT INFORMATION
  Report Type: Spontaneous
  Country: DE (occurrence: DE)
  Receive Date: 20130128
  Receipt Date: 20130328
  Transmission Date: 20140127
  Serious: Yes (Hospitalization)
  Sender: FDA-Public Use
  Company Number: DE-JNJFOC-20130110200

PATIENT
  Age: 71 Year
  Sex: 0
  Weight: 60 kg

DRUGS (13)
  1. XARELTO [Suspect]
     Indication: HIP ARTHROPLASTY
     Route: 048
     Dates: start: 20121018, end: 20121107
  2. XARELTO [Suspect]
     Indication: THROMBOSIS PROPHYLAXIS
     Route: 048
     Dates: start: 20121018, end: 20121107
  3. TRAMAL [Concomitant]
     Route: 065
     Dates: end: 20121106
  4. PANTOZOL [Concomitant]
     Route: 065
  5. NOVAMINSULFON [Concomitant]
     Route: 065
     Dates: end: 20121106
  6. EUTHYROX [Concomitant]
     Route: 065
  7. PLANUM [Concomitant]
     Route: 065
  8. ARCOXIA [Concomitant]
     Route: 065
  9. MIRTAZAPIN [Concomitant]
     Route: 065
  10. ATMADISC [Concomitant]
     Route: 065
  11. MONO-EMBOLEX [Concomitant]
     Route: 058
     Dates: start: 20121107
  12. UNFRACTIONATED HEPARIN [Concomitant]
     Route: 065
     Dates: start: 20121109
  13. CLEXANE [Concomitant]
     Route: 065
     Dates: start: 20121112

REACTIONS (6)
  - Abdominal rigidity [Unknown]
  - Transaminases increased [Recovering/Resolving]
  - Drug-induced liver injury [Recovering/Resolving]
  - Abdominal pain upper [Unknown]
  - Nausea [Unknown]
  - Ascites [Unknown]
